FAERS Safety Report 10945178 (Version 1)
Quarter: 2015Q1

REPORT INFORMATION
  Report Type: Spontaneous
  Country: US (occurrence: None)
  Receive Date: 20150320
  Receipt Date: 20150320
  Transmission Date: 20150721
  Serious: Yes (Other)
  Sender: FDA-Public Use
  Company Number: US-2015CRT000009

PATIENT
  Age: 74 Year
  Sex: Female
  Weight: 52.16 kg

DRUGS (10)
  1. ATENOLOL. [Concomitant]
     Active Substance: ATENOLOL
  2. VITAMIN D [Concomitant]
     Active Substance: CHOLECALCIFEROL
  3. CELEBREX [Concomitant]
     Active Substance: CELECOXIB
  4. MULTIVITAMIN [Concomitant]
     Active Substance: VITAMINS
  5. AMITIZA [Concomitant]
     Active Substance: LUBIPROSTONE
  6. LIPITOR [Concomitant]
     Active Substance: ATORVASTATIN CALCIUM
  7. VERAPAMIL [Concomitant]
     Active Substance: VERAPAMIL HYDROCHLORIDE
  8. KORLYM [Suspect]
     Active Substance: MIFEPRISTONE
     Indication: CUSHING^S SYNDROME
     Route: 048
     Dates: start: 20140527
  9. ASPIRIN. [Concomitant]
     Active Substance: ASPIRIN
  10. PLAVIX [Concomitant]
     Active Substance: CLOPIDOGREL BISULFATE

REACTIONS (2)
  - Blood potassium decreased [None]
  - Coronary arterial stent insertion [None]
